FAERS Safety Report 8766692 (Version 1)
Quarter: 2012Q4

REPORT INFORMATION
  Report Type: 
  Country: AR (occurrence: AR)
  Receive Date: 20120904
  Receipt Date: 20120904
  Transmission Date: 20130627
  Serious: Yes (Other)
  Sender: FDA-Public Use
  Company Number: AR-VERTEX PHARMACEUTICAL INC.-2012-020371

PATIENT
  Age: 60 Year
  Sex: Male
  Weight: 80 kg

DRUGS (4)
  1. INCIVO [Suspect]
     Indication: HEPATITIS C
     Dosage: Dosage Form: Tablet: 1 dose every 8 hour
     Route: 048
     Dates: start: 20120615, end: 20120821
  2. PEGINTERFERON ALFA 2B [Concomitant]
     Indication: HEPATITIS C
     Dosage: UNK
     Route: 065
  3. RIBAVIRIN [Concomitant]
     Indication: HEPATITIS C
     Dosage: Dosage Form: Unknown
     Route: 065
  4. INSULIN [Concomitant]
     Indication: DIABETES MELLITUS
     Dosage: Dosage Form: Unknown
     Route: 058

REACTIONS (4)
  - Syncope [Recovered/Resolved]
  - Vision blurred [None]
  - Balance disorder [None]
  - Blood glucose increased [None]
